FAERS Safety Report 10641082 (Version 1)
Quarter: 2014Q4

REPORT INFORMATION
  Report Type: Spontaneous
  Country: US (occurrence: US)
  Receive Date: 20141209
  Receipt Date: 20141209
  Transmission Date: 20150529
  Serious: Yes (Hospitalization, Other)
  Sender: FDA-Public Use
  Company Number: US-WATSON-2014-26191

PATIENT
  Age: 41 Year
  Sex: Male

DRUGS (4)
  1. NANDROLONE DECANOATE (WATSON LABORATORIES) [Suspect]
     Active Substance: NANDROLONE DECANOATE
     Indication: DRUG ABUSE
     Dosage: 400 MG, 2/WEEK
     Route: 030
  2. IBUPROFEN. [Concomitant]
     Active Substance: IBUPROFEN
     Indication: PRODUCT USED FOR UNKNOWN INDICATION
     Dosage: OCCASIONAL 200 MG, 1-2 TIMES PER MONTH
     Route: 065
  3. METHANDROSTENOLONE [Suspect]
     Active Substance: METHANDROSTENOLONE
     Indication: DRUG ABUSE
     Dosage: 60 MG, DAILY
     Route: 048
  4. TESTOSTERONE (WATSON LABORATORIES) [Suspect]
     Active Substance: TESTOSTERONE
     Indication: DRUG ABUSE
     Dosage: 400 MG, 1/WEEK
     Route: 030

REACTIONS (3)
  - Acute kidney injury [Recovered/Resolved with Sequelae]
  - Drug abuse [Recovered/Resolved]
  - Cholestasis [Unknown]
